FAERS Safety Report 6441994-2 (Version None)
Quarter: 2009Q4

REPORT INFORMATION
  Report Type: 
  Country: None (occurrence: None)
  Receive Date: 20091116
  Receipt Date: 20091110
  Transmission Date: 20100525
  Serious: Yes (Other)
  Sender: FDA-Public Use
  Company Number: JP-JNJFOC-20090402708

PATIENT
  Sex: Male
  Weight: 71 kg

DRUGS (11)
  1. RISPERDAL [Suspect]
     Route: 048
  2. RISPERDAL [Suspect]
     Route: 048
  3. RISPERDAL [Suspect]
     Route: 048
  4. RISPERDAL [Suspect]
     Indication: BIPOLAR I DISORDER
     Route: 048
  5. AKINETON [Suspect]
     Indication: SALIVARY HYPERSECRETION
     Route: 048
  6. LITHIUM CARBONATE [Concomitant]
     Indication: BIPOLAR DISORDER
  7. TERBINAFINE HYDROCHLORIDE [Concomitant]
     Indication: TINEA INFECTION
     Route: 048
  8. AMLODIPINE BESYLATE [Concomitant]
     Indication: ESSENTIAL HYPERTENSION
     Route: 048
  9. CELIPROLOL HYDROCHLORIDE [Concomitant]
     Indication: ESSENTIAL HYPERTENSION
     Route: 048
  10. TRICHLORMETHIAZIDE [Concomitant]
     Indication: ESSENTIAL HYPERTENSION
     Route: 048
  11. MYSLEE [Concomitant]
     Route: 048

REACTIONS (1)
  - DELIRIUM [None]
